FAERS Safety Report 9684209 (Version 1)
Quarter: 2013Q4

REPORT INFORMATION
  Report Type: Spontaneous
  Country: US (occurrence: None)
  Receive Date: 20131111
  Receipt Date: 20131111
  Transmission Date: 20140711
  Serious: Yes (Other)
  Sender: FDA-Public Use
  Company Number: None

PATIENT
  Age: 17 Year
  Sex: Female
  Weight: 47.63 kg

DRUGS (1)
  1. THORAZINE [Suspect]
     Indication: SELF-MEDICATION

REACTIONS (1)
  - Blindness transient [None]
